FAERS Safety Report 15762645 (Version 1)
Quarter: 2018Q4

REPORT INFORMATION
  Report Type: Spontaneous
  Country: FR (occurrence: FR)
  Receive Date: 20181226
  Receipt Date: 20181226
  Transmission Date: 20190205
  Serious: Yes (Life-Threatening)
  Sender: FDA-Public Use
  Company Number: FR-PFIZER INC-2018530134

PATIENT
  Age: 11 Month
  Sex: Male
  Weight: 11 kg

DRUGS (4)
  1. ALDACTONE [Concomitant]
     Active Substance: SPIRONOLACTONE
     Dosage: UNK
  2. NOYADA [Concomitant]
     Dosage: UNK
  3. CORDARONE [Suspect]
     Active Substance: AMIODARONE HYDROCHLORIDE
     Indication: MYOCARDITIS
     Dosage: 140 MG, 1X/DAY
     Route: 048
     Dates: start: 201806, end: 20181128
  4. BISOCE [Suspect]
     Active Substance: BISOPROLOL
     Indication: MYOCARDITIS
     Dosage: 2 MG, DAILY
     Route: 048
     Dates: start: 201810

REACTIONS (1)
  - Atrioventricular block second degree [Recovered/Resolved]

NARRATIVE: CASE EVENT DATE: 20181127
